FAERS Safety Report 4920516-9 (Version None)
Quarter: 2006Q1

REPORT INFORMATION
  Report Type: 
  Country: None (occurrence: None)
  Receive Date: 20060217
  Receipt Date: 20060209
  Transmission Date: 20060701
  Serious: Yes (Other)
  Sender: FDA-Public Use
  Company Number: 221214

PATIENT
  Age: 54 Year
  Sex: Female
  Weight: 90.7 kg

DRUGS (2)
  1. NUTROPIN AQ [Suspect]
     Indication: CRANIOPHARYNGIOMA
     Dosage: 0.3 MG SUBCUTANEOUS
     Route: 058
     Dates: start: 20041110
  2. ARICEPT [Concomitant]

REACTIONS (2)
  - CRANIOPHARYNGIOMA [None]
  - NEOPLASM RECURRENCE [None]
